FAERS Safety Report 4999879-4 (Version None)
Quarter: 2006Q2

REPORT INFORMATION
  Report Type: 
  Country: None (occurrence: None)
  Receive Date: 20060509
  Receipt Date: 20060425
  Transmission Date: 20061013
  Serious: Yes (Hospitalization)
  Sender: FDA-Public Use
  Company Number: 2006S1000091

PATIENT
  Age: 65 Year
  Sex: Male

DRUGS (1)
  1. CUBICIN [Suspect]
     Indication: ENDOCARDITIS ENTEROCOCCAL
     Dosage: 350 MG
     Dates: start: 20060101, end: 20060101

REACTIONS (3)
  - ENTEROCOCCAL BACTERAEMIA [None]
  - LABORATORY TEST INTERFERENCE [None]
  - THERAPY NON-RESPONDER [None]
